FAERS Safety Report 9915997 (Version 1)
Quarter: 2014Q1

REPORT INFORMATION
  Report Type: Spontaneous
  Country: US (occurrence: US)
  Receive Date: 20140221
  Receipt Date: 20140221
  Transmission Date: 20141002
  Serious: No
  Sender: FDA-Public Use
  Company Number: US-009507513-1402USA007062

PATIENT
  Age: 66 Year
  Sex: Female

DRUGS (9)
  1. JANUMET XR [Suspect]
     Indication: DIABETES MELLITUS
     Dosage: 1  DOSE ONCE A DAY
     Route: 048
     Dates: start: 20140210
  2. ADVAIR [Concomitant]
  3. CELEBREX [Concomitant]
  4. CIPROFLOXACIN [Concomitant]
  5. CITALOPRAM [Concomitant]
  6. FLUTICASONE [Concomitant]
  7. LORAZEPAM [Concomitant]
  8. OXYBUTYNIN [Concomitant]
  9. PROTONIX [Concomitant]

REACTIONS (1)
  - Rash [Unknown]
